FAERS Safety Report 20641682 (Version 1)
Quarter: 2022Q1

REPORT INFORMATION
  Report Type: Spontaneous
  Country: US (occurrence: US)
  Receive Date: 20220328
  Receipt Date: 20220328
  Transmission Date: 20220423
  Serious: Yes (Other)
  Sender: FDA-Public Use
  Company Number: US-BRISTOL-MYERS SQUIBB COMPANY-USA-20220304816

PATIENT
  Age: 63 Year
  Sex: Female
  Weight: 58.967 kg

DRUGS (1)
  1. POMALYST [Suspect]
     Active Substance: POMALIDOMIDE
     Indication: Product used for unknown indication
     Dosage: 21 DAYS ON  7 DAYS OFF
     Route: 048
     Dates: start: 20210513

REACTIONS (1)
  - Neuropathy peripheral [Recovered/Resolved with Sequelae]
